FAERS Safety Report 25528063 (Version 2)
Quarter: 2025Q3

REPORT INFORMATION
  Report Type: Spontaneous
  Country: EU (occurrence: EU)
  Receive Date: 20250708
  Receipt Date: 20250721
  Transmission Date: 20251021
  Serious: Yes (Life-Threatening)
  Sender: SANOFI AVENTIS
  Company Number: EU-ROCHE-10000316641

PATIENT
  Age: 79 Year
  Sex: Male

DRUGS (16)
  1. CAPECITABINE [Suspect]
     Active Substance: CAPECITABINE
     Indication: Colorectal cancer metastatic
     Dosage: 3300 MG, QD (ON 13/SEP/2023, HE RECEIVED CAPECITABINE FOR THE LAST TIME (3300 MG) DURING THE 22ND CY
     Route: 065
     Dates: start: 20220621, end: 20230913
  2. OXALIPLATIN [Suspect]
     Active Substance: OXALIPLATIN
     Indication: Colorectal cancer metastatic
     Route: 042
     Dates: start: 20220621, end: 20230926
  3. OXALIPLATIN [Suspect]
     Active Substance: OXALIPLATIN
     Indication: Pallor
     Route: 065
     Dates: start: 20230905
  4. OXALIPLATIN [Suspect]
     Active Substance: OXALIPLATIN
     Indication: Cough
  5. OXALIPLATIN [Suspect]
     Active Substance: OXALIPLATIN
     Indication: Hyperhidrosis
  6. OXALIPLATIN [Suspect]
     Active Substance: OXALIPLATIN
     Indication: Loss of consciousness
  7. AVASTIN [Suspect]
     Active Substance: BEVACIZUMAB
     Indication: Colorectal cancer metastatic
     Route: 042
     Dates: start: 20220802, end: 20230926
  8. ATEZOLIZUMAB [Suspect]
     Active Substance: ATEZOLIZUMAB
     Indication: Colorectal cancer metastatic
     Route: 042
     Dates: start: 20220621, end: 20230926
  9. LIPTRUZET [Concomitant]
     Active Substance: ATORVASTATIN CALCIUM\EZETIMIBE
     Indication: Hypertension
     Dosage: 40 MG, QD
  10. ENALAPRIL MALEATE\LERCANIDIPINE HYDROCHLORIDE [Concomitant]
     Active Substance: ENALAPRIL MALEATE\LERCANIDIPINE HYDROCHLORIDE
     Indication: Hypertension
     Dosage: 20 MG, QD
  11. BROMAZEPAM [Concomitant]
     Active Substance: BROMAZEPAM
     Indication: Anxiety
     Dosage: 6 MG, QD
  12. GAVISCON [Concomitant]
     Active Substance: ALUMINUM HYDROXIDE\MAGNESIUM CARBONATE
     Indication: Nausea
  13. CARAFATE [Concomitant]
     Active Substance: SUCRALFATE
  14. CORN OIL, OXIDIZED [Concomitant]
     Active Substance: CORN OIL, OXIDIZED
  15. CETALKONIUM CHLORIDE\CHOLINE SALICYLATE [Concomitant]
     Active Substance: CETALKONIUM CHLORIDE\CHOLINE SALICYLATE
  16. SOLU-MEDROL [Concomitant]
     Active Substance: METHYLPREDNISOLONE SODIUM SUCCINATE
     Indication: Loss of consciousness

REACTIONS (6)
  - Drug hypersensitivity [Recovered/Resolved]
  - Paraesthesia oral [Unknown]
  - Feeding disorder [Unknown]
  - Pain in jaw [Unknown]
  - Weight decreased [Unknown]
  - Paraesthesia [Unknown]

NARRATIVE: CASE EVENT DATE: 20230926
